FAERS Safety Report 5097924-1 (Version None)
Quarter: 2006Q3

REPORT INFORMATION
  Report Type: 
  Country: None (occurrence: None)
  Receive Date: 20060905
  Receipt Date: 20060905
  Transmission Date: 20061208
  Serious: No
  Sender: FDA-Public Use
  Company Number: None

PATIENT
  Age: 42 Year
  Sex: Male
  Weight: 74.8435 kg

DRUGS (3)
  1. ZICAM - COLD REMEDY MATRIXX INITIATIVES [Suspect]
     Indication: INFLUENZA
     Dosage: 4 PUMPS 3-4 TIMES A DAY SL
     Route: 060
     Dates: start: 20060819, end: 20060821
  2. ZICAM - COLD REMEDY MATRIXX INITIATIVES [Suspect]
     Indication: NASOPHARYNGITIS
     Dosage: 4 PUMPS 3-4 TIMES A DAY SL
     Route: 060
     Dates: start: 20060819, end: 20060821
  3. ZICAM - CONGESTION RELIEF MATRIXX INITIATIVES [Suspect]
     Dosage: 2 PUMPS 1 - ONCE A DAY- NASAL
     Route: 045
     Dates: start: 20060819, end: 20060829

REACTIONS (2)
  - AGEUSIA [None]
  - ANOSMIA [None]
